FAERS Safety Report 19767950 (Version 1)
Quarter: 2021Q3

REPORT INFORMATION
  Report Type: Spontaneous
  Country: JP (occurrence: JP)
  Receive Date: 20210830
  Receipt Date: 20210830
  Transmission Date: 20211014
  Serious: Yes (Hospitalization, Other)
  Sender: FDA-Public Use
  Company Number: NVSC2021JP195462

PATIENT
  Age: 84 Year
  Sex: Female

DRUGS (1)
  1. RECLAST [Suspect]
     Active Substance: ZOLEDRONIC ACID
     Indication: PRODUCT USED FOR UNKNOWN INDICATION
     Dosage: 5 MG, Q12MO (ONCE YEARLY)
     Route: 041
     Dates: start: 20190925

REACTIONS (8)
  - Loss of consciousness [Unknown]
  - Nausea [Unknown]
  - Facial spasm [Unknown]
  - Nervous system disorder [Unknown]
  - Cerebral infarction [Unknown]
  - Tooth disorder [Unknown]
  - Visceral congestion [Unknown]
  - Head injury [Unknown]

NARRATIVE: CASE EVENT DATE: 2020
